FAERS Safety Report 17075817 (Version 2)
Quarter: 2020Q1

REPORT INFORMATION
  Report Type: Report from Study
  Country: US (occurrence: US)
  Receive Date: 20191126
  Receipt Date: 20200107
  Transmission Date: 20200409
  Serious: Yes (Other)
  Sender: FDA-Public Use
  Company Number: US-UCBSA-2019049408

PATIENT

DRUGS (1)
  1. LACOSAMIDE. [Suspect]
     Active Substance: LACOSAMIDE
     Indication: SEIZURE
     Dosage: UNK

REACTIONS (7)
  - Drug ineffective [Unknown]
  - Hyporeflexia [Unknown]
  - Adverse drug reaction [Unknown]
  - Fibula fracture [Unknown]
  - Alopecia [Unknown]
  - Clumsiness [Unknown]
  - Intentional product misuse [Unknown]
